FAERS Safety Report 4559604-8 (Version None)
Quarter: 2005Q1

REPORT INFORMATION
  Report Type: 
  Country: None (occurrence: None)
  Receive Date: 20050113
  Receipt Date: 20041021
  Transmission Date: 20050727
  Serious: Yes (Other)
  Sender: FDA-Public Use
  Company Number: 384137

PATIENT

DRUGS (3)
  1. FUZEON [Suspect]
     Indication: HIV INFECTION
  2. EPIVIR (LAMIVUDINDE) [Concomitant]
  3. HEPATITIS B IMMUNOGLOBULINS (HEPATITIS B IMMUNOGLOBULINS) [Concomitant]

REACTIONS (2)
  - INJECTION SITE NODULE [None]
  - INJECTION SITE REACTION [None]
